FAERS Safety Report 5161050-3 (Version None)
Quarter: 2006Q4

REPORT INFORMATION
  Report Type: 
  Country: None (occurrence: None)
  Receive Date: 20061121
  Receipt Date: 20061109
  Transmission Date: 20070319
  Serious: Yes (Other)
  Sender: FDA-Public Use
  Company Number: 2006PV024874

PATIENT
  Age: 56 Year
  Sex: Male

DRUGS (6)
  1. BYETTA [Suspect]
     Indication: DIABETES MELLITUS INSULIN-DEPENDENT
     Dosage: SEE IMAGE
     Route: 058
     Dates: start: 20060201, end: 20060301
  2. BYETTA [Suspect]
     Indication: DIABETES MELLITUS INSULIN-DEPENDENT
     Dosage: SEE IMAGE
     Route: 058
     Dates: start: 20060301, end: 20060901
  3. BYETTA [Suspect]
     Indication: DIABETES MELLITUS INSULIN-DEPENDENT
     Dosage: SEE IMAGE
     Route: 058
     Dates: start: 20061107
  4. LANTUS [Concomitant]
  5. NOVOLOG [Concomitant]
  6. DIGOXIN [Concomitant]

REACTIONS (4)
  - CHEST PAIN [None]
  - CORONARY ARTERY OCCLUSION [None]
  - GASTROOESOPHAGEAL REFLUX DISEASE [None]
  - HEART RATE IRREGULAR [None]
